FAERS Safety Report 22677324 (Version 2)
Quarter: 2025Q4

REPORT INFORMATION
  Report Type: Spontaneous
  Country: EU (occurrence: EU)
  Receive Date: 20230706
  Receipt Date: 20251219
  Transmission Date: 20260118
  Serious: Yes (Death, Life-Threatening, Hospitalization, Other)
  Sender: RANBAXY
  Company Number: EU-SUN PHARMACEUTICAL INDUSTRIES LTD-2023R1-398110

PATIENT
  Age: 35 Year
  Sex: Male
  Weight: 67 kg

DRUGS (7)
  1. FENTANYL [Suspect]
     Active Substance: FENTANYL
     Indication: Product used for unknown indication
     Dosage: UNK
     Route: 065
  2. PREGABALIN [Suspect]
     Active Substance: PREGABALIN
     Indication: Product used for unknown indication
     Dosage: UNK
     Route: 065
  3. AMPHETAMINE [Concomitant]
     Active Substance: AMPHETAMINE
     Indication: Product used for unknown indication
     Route: 065
  4. DIAZEPAM [Concomitant]
     Active Substance: DIAZEPAM
     Indication: Product used for unknown indication
     Route: 065
  5. METHADONE [Concomitant]
     Active Substance: METHADONE HYDROCHLORIDE
     Indication: Product used for unknown indication
     Route: 065
  6. TILIDINE [Concomitant]
     Active Substance: TILIDINE
     Indication: Product used for unknown indication
     Route: 065
  7. TRAMADOL [Concomitant]
     Active Substance: TRAMADOL
     Indication: Product used for unknown indication
     Route: 065

REACTIONS (10)
  - Pulmonary oedema [Fatal]
  - Hepatomegaly [Fatal]
  - Congestive hepatopathy [Fatal]
  - Respiratory depression [Fatal]
  - Drug abuse [Fatal]
  - Wrong technique in product usage process [Fatal]
  - Toxicity to various agents [Fatal]
  - Brain oedema [Fatal]
  - Incorrect route of product administration [Fatal]
  - Toxicity to various agents [Fatal]
